FAERS Safety Report 6389270-0 (Version None)
Quarter: 2009Q4

REPORT INFORMATION
  Report Type: 
  Country: None (occurrence: None)
  Receive Date: 20091006
  Receipt Date: 20090929
  Transmission Date: 20100525
  Serious: Yes (Death, Hospitalization)
  Sender: FDA-Public Use
  Company Number: PHHY2009FR42115

PATIENT
  Sex: Male

DRUGS (11)
  1. TRILEPTAL [Suspect]
     Dosage: 300 MG, BID
     Route: 048
     Dates: start: 20080401
  2. TRILEPTAL [Suspect]
     Dosage: 600 MG, BID
     Route: 048
     Dates: start: 20080917
  3. TRILEPTAL [Suspect]
     Dosage: 300 MG, BID
     Route: 048
     Dates: start: 20090101
  4. TRILEPTAL [Suspect]
     Dosage: 150 MG/DAY
     Route: 048
     Dates: end: 20090225
  5. IMOVANE [Concomitant]
     Indication: INSOMNIA
     Dosage: 7.5 MG, QD
     Route: 048
     Dates: start: 20070901
  6. KEPPRA [Concomitant]
     Indication: EPILEPSY
     Dosage: 1.5 G, BID
     Route: 048
     Dates: start: 20080301
  7. LYRICA [Concomitant]
     Indication: EPILEPSY
     Dosage: 75 MG, BID
     Route: 048
     Dates: start: 20080901
  8. LYRICA [Concomitant]
     Dosage: 150 MG, BID
     Route: 048
  9. ATARAX [Concomitant]
     Indication: ANXIETY
     Dosage: 25 MG, QD
     Route: 048
     Dates: start: 20090201
  10. XYZAL [Concomitant]
     Dosage: 5 MG, QD
     Route: 048
     Dates: start: 20080901
  11. TRANSIPEG [Concomitant]
     Indication: CONSTIPATION
     Dosage: UNK
     Route: 048
     Dates: start: 20080301

REACTIONS (8)
  - CLONIC CONVULSION [None]
  - EPILEPSY [None]
  - HYPONATRAEMIA [None]
  - INAPPROPRIATE ANTIDIURETIC HORMONE SECRETION [None]
  - LUNG DISORDER [None]
  - POSTURE ABNORMAL [None]
  - STATUS EPILEPTICUS [None]
  - UNRESPONSIVE TO STIMULI [None]
